FAERS Safety Report 24902521 (Version 1)
Quarter: 2025Q1

REPORT INFORMATION
  Report Type: Spontaneous
  Country: CA (occurrence: CA)
  Receive Date: 20250130
  Receipt Date: 20250130
  Transmission Date: 20250409
  Serious: Yes (Hospitalization, Other)
  Sender: NOVO NORDISK
  Company Number: None

PATIENT
  Age: 48 Year
  Sex: Male

DRUGS (1)
  1. OZEMPIC [Suspect]
     Active Substance: SEMAGLUTIDE
     Indication: Product used for unknown indication

REACTIONS (5)
  - General physical health deterioration [Recovering/Resolving]
  - Haematemesis [Recovering/Resolving]
  - Interventional procedure [Recovering/Resolving]
  - Oesophagitis [Recovering/Resolving]
  - Ulcer [Recovering/Resolving]
